FAERS Safety Report 8513046-9 (Version None)
Quarter: 2012Q3

REPORT INFORMATION
  Report Type: 
  Country: None (occurrence: None)
  Receive Date: 20120716
  Receipt Date: 20120511
  Transmission Date: 20120928
  Serious: Yes (Hospitalization)
  Sender: FDA-Public Use
  Company Number: NL-BAXTER-2012BAX005678

PATIENT
  Age: 68 Year
  Sex: Male

DRUGS (5)
  1. PHYSIONEAL 40 GLUCOSE 2.27% W/V / 22.7 MG/ML [Suspect]
     Route: 033
     Dates: start: 20100317
  2. PHYSIOSOL IN PLASTIC CONTAINER [Suspect]
     Route: 033
     Dates: start: 20100317
  3. EXTRANEAL [Suspect]
     Route: 033
     Dates: start: 20100317
  4. VITAMIN D [Concomitant]
  5. NUTRINEAL [Suspect]
     Route: 033
     Dates: start: 20100317

REACTIONS (3)
  - ABDOMINAL PAIN [None]
  - MALAISE [None]
  - DIARRHOEA [None]
